FAERS Safety Report 9107046 (Version 1)
Quarter: 2013Q1

REPORT INFORMATION
  Report Type: Spontaneous
  Country: US (occurrence: US)
  Receive Date: 20130221
  Receipt Date: 20130221
  Transmission Date: 20140127
  Serious: Yes (Other)
  Sender: FDA-Public Use
  Company Number: US-BAYER-2013-020459

PATIENT
  Age: 37 Year
  Sex: Female

DRUGS (7)
  1. YAZ [Suspect]
  2. GIANVI [Suspect]
  3. NEXIUM [Concomitant]
  4. MOBIC [Concomitant]
  5. ZANTAC [Concomitant]
  6. NORCO [Concomitant]
  7. ROBAXIN [Concomitant]

REACTIONS (2)
  - Cholelithiasis [None]
  - Thrombophlebitis superficial [None]
